FAERS Safety Report 11720513 (Version 1)
Quarter: 2015Q4

REPORT INFORMATION
  Report Type: Spontaneous
  Country: US (occurrence: None)
  Receive Date: 20151110
  Receipt Date: 20151110
  Transmission Date: 20160304
  Serious: Yes (Other)
  Sender: FDA-Public Use
  Company Number: US-MDT-ADR-2015-02110

PATIENT

DRUGS (1)
  1. BACLOFEN (ORAL) [Suspect]
     Active Substance: BACLOFEN

REACTIONS (3)
  - Delirium [None]
  - Overdose [None]
  - Substance-induced psychotic disorder [None]
